FAERS Safety Report 15246167 (Version 1)
Quarter: 2018Q3

REPORT INFORMATION
  Report Type: Spontaneous
  Country: IN (occurrence: IN)
  Receive Date: 20180806
  Receipt Date: 20180806
  Transmission Date: 20181010
  Serious: Yes (Other)
  Sender: FDA-Public Use
  Company Number: IN-GLAXOSMITHKLINE-IN2018GSK141006

PATIENT
  Age: 32 Year
  Sex: Male

DRUGS (4)
  1. TRIFLUOPERAZINE [Suspect]
     Active Substance: TRIFLUOPERAZINE\TRIFLUOPERAZINE HYDROCHLORIDE
     Indication: DELUSIONAL DISORDER, UNSPECIFIED TYPE
     Dosage: 5 MG
  2. TRIHEXYPHENIDYL [Suspect]
     Active Substance: TRIHEXYPHENIDYL
     Indication: DELUSIONAL DISORDER, UNSPECIFIED TYPE
     Dosage: 2 MG
  3. PENTAZOCINE [Suspect]
     Active Substance: PENTAZOCINE
     Indication: PRODUCT USED FOR UNKNOWN INDICATION
  4. NICOTINE. [Suspect]
     Active Substance: NICOTINE
     Indication: PRODUCT USED FOR UNKNOWN INDICATION

REACTIONS (8)
  - Irritability [Unknown]
  - Obsessive thoughts [Unknown]
  - Anxiety [Unknown]
  - Treatment noncompliance [Unknown]
  - Restlessness [Unknown]
  - Overdose [Unknown]
  - Sleep disorder [Unknown]
  - Drug dependence [Unknown]
